FAERS Safety Report 6240333-X (Version None)
Quarter: 2009Q2

REPORT INFORMATION
  Report Type: 
  Country: None (occurrence: None)
  Receive Date: 20090623
  Receipt Date: 20080724
  Transmission Date: 20091009
  Serious: No
  Sender: FDA-Public Use
  Company Number: US-ASTRAZENECA-2008UW15329

PATIENT
  Age: 10 Year
  Sex: Male
  Weight: 24.9 kg

DRUGS (3)
  1. PULMICORT RESPULES [Suspect]
     Indication: ASTHMA
     Dosage: 0.5 MG
     Route: 055
  2. XOPENEX [Concomitant]
  3. PATANASE [Concomitant]

REACTIONS (2)
  - COUGH [None]
  - WHEEZING [None]
